FAERS Safety Report 7610632-5 (Version None)
Quarter: 2011Q3

REPORT INFORMATION
  Report Type: 
  Country: None (occurrence: None)
  Receive Date: 20110715
  Receipt Date: 20110701
  Transmission Date: 20111222
  Serious: Yes (Other)
  Sender: FDA-Public Use
  Company Number: US-BAYER-201042132NA

PATIENT
  Age: 18 Year
  Sex: Female
  Weight: 104.31 kg

DRUGS (6)
  1. ALBUTEROL SULFATE AUTOHALER [Concomitant]
     Dosage: UNK
     Dates: start: 20080101, end: 20090101
  2. PROTONIX [Concomitant]
     Dosage: UNK
     Dates: start: 20081013
  3. YAZ [Suspect]
     Indication: PREMENSTRUAL SYNDROME
     Dosage: UNK UNK, UNK
     Route: 048
     Dates: start: 20080601, end: 20081201
  4. COMBIVENT [Concomitant]
     Dosage: UNK
  5. LEVSIN [Concomitant]
     Dosage: UNK
     Dates: start: 20081013
  6. YAZ [Suspect]

REACTIONS (2)
  - GALLBLADDER DISORDER [None]
  - BILIARY DYSKINESIA [None]
